FAERS Safety Report 5132683-5 (Version None)
Quarter: 2006Q4

REPORT INFORMATION
  Report Type: 
  Country: None (occurrence: None)
  Receive Date: 20061017
  Receipt Date: 20061004
  Transmission Date: 20070319
  Serious: Yes (Hospitalization)
  Sender: FDA-Public Use
  Company Number: DE-2006-027036

PATIENT
  Age: 28 Year
  Sex: Female
  Weight: 56 kg

DRUGS (3)
  1. BETAFERON (INTERFERON BETA - 1B)  INJECTION, 250?G [Suspect]
     Indication: MULTIPLE SCLEROSIS
     Dosage: SEE IMAGE, INTRAVENOUS
     Route: 042
     Dates: start: 20060810, end: 20060827
  2. BETAFERON (INTERFERON BETA - 1B)  INJECTION, 250?G [Suspect]
     Indication: MULTIPLE SCLEROSIS
     Dosage: SEE IMAGE, INTRAVENOUS
     Route: 042
     Dates: start: 20060912
  3. IBUPROFEN [Concomitant]

REACTIONS (6)
  - ABDOMINAL PAIN LOWER [None]
  - CIRCULATORY COLLAPSE [None]
  - GENITAL HAEMORRHAGE [None]
  - NAUSEA [None]
  - UTERINE CYST [None]
  - VOMITING [None]
